FAERS Safety Report 5669490-0 (Version None)
Quarter: 2008Q1

REPORT INFORMATION
  Report Type: 
  Country: None (occurrence: None)
  Receive Date: 20080317
  Receipt Date: 20080313
  Transmission Date: 20080703
  Serious: Yes (Life-Threatening)
  Sender: FDA-Public Use
  Company Number: UA-ASTRAZENECA-2008AC00676

PATIENT
  Sex: Male

DRUGS (1)
  1. LIGNOCAINE [Suspect]
     Indication: BRONCHITIS
     Dosage: RETROSTERNAL BLOCK
     Route: 050

REACTIONS (4)
  - DYSPHAGIA [None]
  - PROCEDURAL COMPLICATION [None]
  - STRIDOR [None]
  - VOCAL CORD PARESIS [None]
